FAERS Safety Report 8823291 (Version 3)
Quarter: 2012Q4

REPORT INFORMATION
  Report Type: 
  Country: US (occurrence: US)
  Receive Date: 20121003
  Receipt Date: 20121109
  Transmission Date: 20130627
  Serious: Yes (Other)
  Sender: FDA-Public Use
  Company Number: US-ROCHE-791120

PATIENT
  Age: 20 Year
  Sex: Female
  Weight: 70.37 kg

DRUGS (2)
  1. ACCUTANE [Suspect]
     Indication: ACNE
     Route: 065
     Dates: start: 19980116, end: 199806
  2. INSULIN [Concomitant]

REACTIONS (7)
  - Inflammatory bowel disease [Unknown]
  - Colitis microscopic [Unknown]
  - Stress [Unknown]
  - Depression [Unknown]
  - Colitis ulcerative [Unknown]
  - Epistaxis [Unknown]
  - Chapped lips [Unknown]
